FAERS Safety Report 4482269-0 (Version None)
Quarter: 2004Q4

REPORT INFORMATION
  Report Type: 
  Country: None (occurrence: None)
  Receive Date: 20041020
  Receipt Date: 20041005
  Transmission Date: 20050328
  Serious: Yes (Hospitalization)
  Sender: FDA-Public Use
  Company Number: A-US2004-07316

PATIENT
  Age: 74 Year
  Sex: Female

DRUGS (7)
  1. TRACLEER [Suspect]
     Indication: CHRONIC OBSTRUCTIVE AIRWAYS DISEASE
     Dosage: 62.5 MG, BID, ORAL
     Route: 048
     Dates: start: 20040610, end: 20040101
  2. DIGOXIN [Concomitant]
  3. COZAAR [Concomitant]
  4. SINGULAIR [Concomitant]
  5. DILTIAZEM [Concomitant]
  6. REGLAN [Concomitant]
  7. WARFARIN SODIUM [Concomitant]

REACTIONS (4)
  - CELLULITIS [None]
  - CHRONIC OBSTRUCTIVE AIRWAYS DISEASE EXACERBATED [None]
  - HEPATOMEGALY [None]
  - RIGHT VENTRICULAR FAILURE [None]
